FAERS Safety Report 18322152 (Version 1)
Quarter: 2020Q3

REPORT INFORMATION
  Report Type: Spontaneous
  Country: US (occurrence: US)
  Receive Date: 20200928
  Receipt Date: 20200928
  Transmission Date: 20201103
  Serious: No
  Sender: FDA-Public Use
  Company Number: None

PATIENT
  Age: 19 Year
  Sex: Male
  Weight: 56.25 kg

DRUGS (4)
  1. HYDROXYZINE PAM 25MG CAPS [Concomitant]
     Active Substance: HYDROXYZINE PAMOATE
  2. AMZEEQ [Suspect]
     Active Substance: MINOCYCLINE HYDROCHLORIDE
     Indication: ACNE
     Dosage: ?          QUANTITY:1 OUNCE(S);?
     Route: 061
     Dates: start: 20200828
  3. ORACEA [Concomitant]
     Active Substance: DOXYCYCLINE
  4. CLONAZEPAM ODT 0.125MG [Concomitant]

REACTIONS (3)
  - Headache [None]
  - Eye pain [None]
  - Ocular hyperaemia [None]

NARRATIVE: CASE EVENT DATE: 20200828
